FAERS Safety Report 8761363 (Version 1)
Quarter: 2012Q4

REPORT INFORMATION
  Report Type: 
  Country: PL (occurrence: PL)
  Receive Date: 20120828
  Receipt Date: 20120828
  Transmission Date: 20130627
  Serious: Yes (Other)
  Sender: FDA-Public Use
  Company Number: PL-PFIZER INC-2012205978

PATIENT
  Age: 52 Year
  Sex: Female

DRUGS (1)
  1. METHYLPREDNISOLONE SODIUM SUCCINATE [Suspect]
     Dosage: UNK
     Route: 042

REACTIONS (7)
  - Acute generalised exanthematous pustulosis [Recovered/Resolved]
  - Pustular psoriasis [Recovered/Resolved]
  - Rash pustular [Recovered/Resolved]
  - Pyrexia [Unknown]
  - Leukocytosis [Unknown]
  - Eosinophilia [Unknown]
  - Vasculitis [Unknown]
